FAERS Safety Report 10794721 (Version 1)
Quarter: 2015Q1

REPORT INFORMATION
  Report Type: Spontaneous
  Country: US (occurrence: US)
  Receive Date: 20150213
  Receipt Date: 20150213
  Transmission Date: 20150721
  Serious: No
  Sender: FDA-Public Use
  Company Number: US-GLAXOSMITHKLINE-US2014041372

PATIENT
  Age: 50 Year
  Sex: Male

DRUGS (1)
  1. FLONASE [Suspect]
     Active Substance: FLUTICASONE PROPIONATE
     Indication: SEASONAL ALLERGY
     Dosage: 2 DF, QD
     Route: 045
     Dates: start: 201411

REACTIONS (4)
  - Expired product administered [Unknown]
  - Cough [Unknown]
  - Nasal congestion [Unknown]
  - Drug dispensing error [Unknown]

NARRATIVE: CASE EVENT DATE: 201411
